FAERS Safety Report 18552839 (Version 2)
Quarter: 2020Q4

REPORT INFORMATION
  Report Type: Report from Study
  Country: DE (occurrence: DE)
  Receive Date: 20201127
  Receipt Date: 20201221
  Transmission Date: 20210114
  Serious: Yes (Hospitalization)
  Sender: FDA-Public Use
  Company Number: DE-KYOWAKIRIN-2020BKK020292

PATIENT

DRUGS (3)
  1. BUROSUMAB [Suspect]
     Active Substance: BUROSUMAB
     Indication: HEREDITARY HYPOPHOSPHATAEMIC RICKETS
     Dosage: 5 MG
     Route: 058
     Dates: start: 20180516
  2. BUROSUMAB [Suspect]
     Active Substance: BUROSUMAB
     Dosage: 13 MG
     Route: 058
     Dates: start: 20201110, end: 2020
  3. BUROSUMAB [Suspect]
     Active Substance: BUROSUMAB
     Dosage: UNK
     Route: 058
     Dates: start: 20201208

REACTIONS (2)
  - Jaw disorder [Recovered/Resolved]
  - Nodule [Recovered/Resolved]
